FAERS Safety Report 13254731 (Version 1)
Quarter: 2017Q1

REPORT INFORMATION
  Report Type: Spontaneous
  Country: US (occurrence: US)
  Receive Date: 20170217
  Receipt Date: 20170217
  Transmission Date: 20170428
  Serious: Yes (Hospitalization)
  Sender: FDA-Public Use
  Company Number: None

PATIENT
  Age: 61 Year
  Sex: Male
  Weight: 81.9 kg

DRUGS (2)
  1. ENTRESTO [Suspect]
     Active Substance: SACUBITRIL\VALSARTAN
     Indication: CARDIOMYOPATHY
     Dosage: ?          QUANTITY:60 TABLET(S);?
     Route: 048
     Dates: start: 20161001, end: 20170216
  2. AICD [Concomitant]

REACTIONS (4)
  - Swollen tongue [None]
  - Lip swelling [None]
  - Rash [None]
  - Pruritus generalised [None]

NARRATIVE: CASE EVENT DATE: 20170214
